FAERS Safety Report 11988337 (Version 2)
Quarter: 2016Q1

REPORT INFORMATION
  Report Type: Spontaneous
  Country: US (occurrence: US)
  Receive Date: 20160202
  Receipt Date: 20160204
  Transmission Date: 20160526
  Serious: Yes (Other)
  Sender: FDA-Public Use
  Company Number: US-BAYER-2016-017840

PATIENT
  Age: 73 Year
  Sex: Female
  Weight: 76.19 kg

DRUGS (1)
  1. CLARITIN REDITABS [Suspect]
     Active Substance: LORATADINE
     Dosage: 1 DF, QD
     Route: 048

REACTIONS (4)
  - Intranasal hypoaesthesia [Recovered/Resolved]
  - Sinus headache [Recovered/Resolved]
  - Hemianaesthesia [Recovered/Resolved]
  - Hypoaesthesia [Not Recovered/Not Resolved]

NARRATIVE: CASE EVENT DATE: 20160122
